FAERS Safety Report 6219992-3 (Version None)
Quarter: 2009Q2

REPORT INFORMATION
  Report Type: 
  Country: None (occurrence: None)
  Receive Date: 20090609
  Receipt Date: 20090602
  Transmission Date: 20091009
  Serious: Yes (Other)
  Sender: FDA-Public Use
  Company Number: FR-AVENTIS-200912031FR

PATIENT
  Age: 87 Year
  Sex: Male

DRUGS (2)
  1. RIFADIN [Suspect]
     Route: 048
     Dates: start: 20090420, end: 20090424
  2. VANCOMYCIN [Concomitant]
     Dates: start: 20090420

REACTIONS (4)
  - BLOOD ALKALINE PHOSPHATASE INCREASED [None]
  - BLOOD BILIRUBIN INCREASED [None]
  - CHOLESTASIS [None]
  - JAUNDICE [None]
